FAERS Safety Report 10754799 (Version 1)
Quarter: 2015Q1

REPORT INFORMATION
  Report Type: Spontaneous
  Country: FR (occurrence: FR)
  Receive Date: 20150202
  Receipt Date: 20150202
  Transmission Date: 20150721
  Serious: Yes (Other)
  Sender: FDA-Public Use
  Company Number: FR-TEVA-536257ISR

PATIENT
  Sex: Male

DRUGS (3)
  1. DIMINEX 2 MG [Suspect]
     Active Substance: MAZINDOL
     Indication: HYPERSOMNIA
     Dosage: 1  DAILY;
     Route: 048
  2. RITALINE [Suspect]
     Active Substance: METHYLPHENIDATE HYDROCHLORIDE
     Route: 048
  3. MODIODAL [Suspect]
     Active Substance: MODAFINIL
     Route: 048

REACTIONS (2)
  - Treatment failure [None]
  - Mitral valve prolapse [Unknown]
